FAERS Safety Report 7455803-6 (Version None)
Quarter: 2011Q2

REPORT INFORMATION
  Report Type: 
  Country: None (occurrence: None)
  Receive Date: 20110503
  Receipt Date: 20110420
  Transmission Date: 20111010
  Serious: Yes (Hospitalization)
  Sender: FDA-Public Use
  Company Number: PHHY2010JP88370

PATIENT
  Sex: Male
  Weight: 58 kg

DRUGS (8)
  1. ZOMETA [Suspect]
     Dosage: UNK
     Route: 042
     Dates: end: 20080612
  2. METFFORMIN HYDROCHLORIDE [Concomitant]
     Indication: DIABETES MELLITUS
  3. GOSERELIN ACETATE [Concomitant]
  4. OXYCONTIN [Concomitant]
     Route: 048
  5. ZOMETA [Suspect]
     Indication: METASTASES TO SPINE
     Dosage: ONCE IN EVERY 4 WEEKS
     Route: 042
     Dates: end: 20080613
  6. ASPIRIN [Concomitant]
     Indication: ANGINA PECTORIS
     Route: 048
  7. DECADRON [Suspect]
     Dosage: UNK
     Route: 048
  8. GLYBURIDE [Concomitant]
     Indication: DIABETES MELLITUS
     Route: 042

REACTIONS (8)
  - BREATH ODOUR [None]
  - JAW DISORDER [None]
  - ORAL MUCOSAL ERYTHEMA [None]
  - IMPAIRED HEALING [None]
  - LOOSE TOOTH [None]
  - BONE DISORDER [None]
  - OSTEOMYELITIS [None]
  - PRIMARY SEQUESTRUM [None]
